FAERS Safety Report 11891337 (Version 1)
Quarter: 2016Q1

REPORT INFORMATION
  Report Type: Spontaneous
  Country: DE (occurrence: DE)
  Receive Date: 20160106
  Receipt Date: 20160106
  Transmission Date: 20160526
  Serious: Yes (Hospitalization)
  Sender: FDA-Public Use
  Company Number: DE-STRIDES ARCOLAB LIMITED-2015SP002564

PATIENT

DRUGS (7)
  1. RISPERIDONE. [Suspect]
     Active Substance: RISPERIDONE
     Dosage: 0.5 MG
  2. BUSPIRONE HYDROCHLORIDE. [Suspect]
     Active Substance: BUSPIRONE HYDROCHLORIDE
     Indication: PSYCHOTIC DISORDER
     Dosage: 5 MG
  3. DOXEPIN [Suspect]
     Active Substance: DOXEPIN
     Dosage: 10 MG
  4. DOXEPIN [Suspect]
     Active Substance: DOXEPIN
     Indication: PSYCHOTIC DISORDER
     Dosage: 10 MG
  5. RISPERIDONE. [Suspect]
     Active Substance: RISPERIDONE
     Indication: PSYCHOTIC DISORDER
     Dosage: 0.5 MG
  6. RISPERIDONE. [Suspect]
     Active Substance: RISPERIDONE
     Dosage: 0.5 MG
  7. DOXEPIN [Suspect]
     Active Substance: DOXEPIN
     Dosage: 25 MG

REACTIONS (4)
  - Feeling cold [Recovered/Resolved]
  - Somnolence [Recovered/Resolved]
  - Hypothermia [Recovered/Resolved]
  - Disturbance in attention [Recovered/Resolved]
